APPROVED DRUG PRODUCT: LORABID
Active Ingredient: LORACARBEF
Strength: 100MG/5ML
Dosage Form/Route: FOR SUSPENSION;ORAL
Application: N050667 | Product #001
Applicant: KING PHARMACEUTICALS INC
Approved: Dec 31, 1991 | RLD: No | RS: No | Type: DISCN